FAERS Safety Report 6457953-X (Version None)
Quarter: 2009Q4

REPORT INFORMATION
  Report Type: 
  Country: None (occurrence: None)
  Receive Date: 20091125
  Receipt Date: 20091119
  Transmission Date: 20100525
  Serious: Yes (Hospitalization, Other)
  Sender: FDA-Public Use
  Company Number: US-ABBOTT-09P-163-0609483-00

PATIENT
  Sex: Male
  Weight: 91.254 kg

DRUGS (9)
  1. ZEMPLAR [Suspect]
     Indication: HYPERPARATHYROIDISM SECONDARY
     Dosage: BIW
     Route: 048
     Dates: start: 20070101
  2. ZEMPLAR [Suspect]
     Indication: RENAL FAILURE CHRONIC
  3. LANTUS [Concomitant]
     Indication: DIABETES MELLITUS
     Route: 058
  4. NOVOLOG [Concomitant]
     Indication: DIABETES MELLITUS
     Dosage: SS
     Route: 058
  5. AGGRENOX [Concomitant]
     Indication: CEREBROVASCULAR ACCIDENT PROPHYLAXIS
     Route: 048
  6. METOPROLOL [Concomitant]
     Indication: CARDIAC DISORDER
     Route: 048
  7. PANTOPRAZOLE [Concomitant]
     Indication: HICCUPS
     Route: 048
  8. VYTORIN [Concomitant]
     Indication: BLOOD CHOLESTEROL
     Dosage: 10/40
     Route: 048
  9. FLOMAX [Concomitant]
     Indication: PROSTATOMEGALY
     Route: 048

REACTIONS (4)
  - ASTHENIA [None]
  - HYPERKALAEMIA [None]
  - ILL-DEFINED DISORDER [None]
  - LIMB INJURY [None]
